FAERS Safety Report 18056415 (Version 12)
Quarter: 2023Q4

REPORT INFORMATION
  Report Type: Report from Study
  Country: US (occurrence: US)
  Receive Date: 20200722
  Receipt Date: 20231004
  Transmission Date: 20240110
  Serious: Yes (Other)
  Sender: FDA-Public Use
  Company Number: US-SHIRE-US202023561

PATIENT
  Sex: Female
  Weight: 43.9 kg

DRUGS (19)
  1. HUMAN IMMUNOGLOBULIN G [Suspect]
     Active Substance: HUMAN IMMUNOGLOBULIN G
     Indication: Immunodeficiency common variable
     Dosage: 5 GRAM, 1/WEEK
     Route: 058
     Dates: start: 20111215
  2. HUMAN IMMUNOGLOBULIN G [Suspect]
     Active Substance: HUMAN IMMUNOGLOBULIN G
     Dosage: 5 GRAM, 1/WEEK
     Route: 058
     Dates: start: 20120112
  3. HUMAN IMMUNOGLOBULIN G [Suspect]
     Active Substance: HUMAN IMMUNOGLOBULIN G
     Dosage: 5 GRAM, 1/WEEK
     Route: 058
     Dates: start: 20120612
  4. FAMOTIDINE [Suspect]
     Active Substance: FAMOTIDINE
     Indication: Product used for unknown indication
     Dosage: UNK
     Route: 050
  5. DIPHENHYDRAMINE [Concomitant]
     Active Substance: DIPHENHYDRAMINE
     Dosage: UNK
     Route: 065
  6. CARVEDILOL [Concomitant]
     Active Substance: CARVEDILOL
     Dosage: UNK
     Route: 065
  7. FUROSEMIDE [Concomitant]
     Active Substance: FUROSEMIDE
     Dosage: UNK
     Route: 065
  8. ADVIL [Concomitant]
     Active Substance: IBUPROFEN
     Dosage: UNK
     Route: 065
  9. EPINEPHRINE [Concomitant]
     Active Substance: EPINEPHRINE
     Dosage: UNK
     Route: 065
  10. LIDOCAINE\PRILOCAINE [Concomitant]
     Active Substance: LIDOCAINE\PRILOCAINE
     Dosage: UNK
     Route: 065
  11. MOMETASONE FUROATE [Concomitant]
     Active Substance: MOMETASONE FUROATE
     Dosage: UNK
     Route: 065
  12. AMLODIPINE BESYLATE [Concomitant]
     Active Substance: AMLODIPINE BESYLATE
     Dosage: UNK
     Route: 065
  13. SALAGEN [Concomitant]
     Active Substance: PILOCARPINE HYDROCHLORIDE
     Dosage: UNK
     Route: 065
  14. DOXYLAMINE SUCCINATE [Concomitant]
     Active Substance: DOXYLAMINE SUCCINATE
     Dosage: UNK
     Route: 065
  15. Lmx [Concomitant]
     Dosage: UNK
     Route: 065
  16. BENICAR [Concomitant]
     Active Substance: OLMESARTAN MEDOXOMIL
     Dosage: UNK
     Route: 065
  17. LIDOCAINE [Concomitant]
     Active Substance: LIDOCAINE
     Dosage: UNK
     Route: 065
  18. PREDNISONE [Concomitant]
     Active Substance: PREDNISONE
     Dosage: UNK
     Route: 065
  19. DIPHENHYDRAMINE HYDROCHLORIDE [Concomitant]
     Active Substance: DIPHENHYDRAMINE HYDROCHLORIDE
     Dosage: UNK
     Route: 065

REACTIONS (24)
  - Post procedural haemorrhage [Unknown]
  - Hyperhidrosis [Unknown]
  - Asthenia [Unknown]
  - Infusion site pruritus [Unknown]
  - Nausea [Unknown]
  - Viral infection [Unknown]
  - Bacterial infection [Unknown]
  - Red blood cell sedimentation rate increased [Unknown]
  - Throat irritation [Unknown]
  - COVID-19 [Unknown]
  - Weight decreased [Unknown]
  - Polyp [Unknown]
  - Gastritis [Unknown]
  - Uterine leiomyoma [Unknown]
  - Gastrointestinal infection [Unknown]
  - Eye irritation [Unknown]
  - Ocular hyperaemia [Unknown]
  - Flatulence [Unknown]
  - Diarrhoea [Unknown]
  - Oropharyngeal pain [Not Recovered/Not Resolved]
  - Blood pressure increased [Unknown]
  - Pain [Unknown]
  - Cough [Unknown]
  - Product dose omission issue [Unknown]
